FAERS Safety Report 14381814 (Version 2)
Quarter: 2018Q1

REPORT INFORMATION
  Report Type: Spontaneous
  Country: US (occurrence: US)
  Receive Date: 20180112
  Receipt Date: 20180112
  Transmission Date: 20180509
  Serious: No
  Sender: FDA-Public Use
  Company Number: US-009507513-1712USA007920

PATIENT
  Sex: Female
  Weight: 58.05 kg

DRUGS (1)
  1. NEXPLANON [Suspect]
     Active Substance: ETONOGESTREL
     Dosage: 1 ROD FOR 3 YEARS
     Route: 059
     Dates: start: 201412, end: 20171214

REACTIONS (3)
  - Complication of device removal [Recovered/Resolved]
  - Device breakage [Recovered/Resolved]
  - No adverse event [Unknown]

NARRATIVE: CASE EVENT DATE: 20171214
